APPROVED DRUG PRODUCT: HYDROXYUREA
Active Ingredient: HYDROXYUREA
Strength: 500MG
Dosage Form/Route: CAPSULE;ORAL
Application: A075340 | Product #001 | TE Code: AB
Applicant: PH HEALTH LTD
Approved: Feb 24, 1999 | RLD: No | RS: No | Type: RX